FAERS Safety Report 14931599 (Version 2)
Quarter: 2019Q1

REPORT INFORMATION
  Report Type: Spontaneous
  Country: US (occurrence: US)
  Receive Date: 20180524
  Receipt Date: 20190123
  Transmission Date: 20190417
  Serious: No
  Sender: FDA-Public Use
  Company Number: US-ELI_LILLY_AND_COMPANY-US201804013049

PATIENT
  Age: 84 Year
  Sex: Female

DRUGS (1)
  1. FORTEO [Suspect]
     Active Substance: TERIPARATIDE
     Indication: HIP FRACTURE
     Dosage: UNK, UNKNOWN
     Route: 058
     Dates: start: 201802

REACTIONS (7)
  - Arthralgia [Unknown]
  - Product dose omission [Unknown]
  - Off label use [Unknown]
  - Injury associated with device [Unknown]
  - Fall [Unknown]
  - Joint injury [Unknown]
  - Inflammation [Unknown]

NARRATIVE: CASE EVENT DATE: 20180423
